FAERS Safety Report 8236735-2 (Version None)
Quarter: 2012Q1

REPORT INFORMATION
  Report Type: 
  Country: None (occurrence: None)
  Receive Date: 20120323
  Receipt Date: 20120309
  Transmission Date: 20120608
  Serious: Yes (Other)
  Sender: FDA-Public Use
  Company Number: 2012-001030

PATIENT
  Age: 45 Year
  Sex: Female

DRUGS (1)
  1. LO LOESTRIN FE [Suspect]
     Indication: MENSTRUATION IRREGULAR
     Dosage: 10/1000 TABLETS, ORAL
     Route: 048

REACTIONS (6)
  - CRYING [None]
  - EMOTIONAL DISTRESS [None]
  - DEPRESSION [None]
  - IRRITABILITY [None]
  - SUICIDAL IDEATION [None]
  - OFF LABEL USE [None]
